FAERS Safety Report 9542372 (Version 1)
Quarter: 2013Q3

REPORT INFORMATION
  Report Type: Spontaneous
  Country: US (occurrence: None)
  Receive Date: 20130919
  Receipt Date: 20130919
  Transmission Date: 20140515
  Serious: Yes (Disabling)
  Sender: FDA-Public Use
  Company Number: None

PATIENT
  Age: 47 Year
  Sex: Female
  Weight: 68.95 kg

DRUGS (2)
  1. SCOPOLAMINE [Suspect]
     Indication: NAUSEA
     Dates: start: 20130906, end: 20130907
  2. SCOPOLAMINE [Suspect]
     Indication: VOMITING
     Dates: start: 20130906, end: 20130907

REACTIONS (3)
  - Mydriasis [None]
  - Impaired work ability [None]
  - Visual impairment [None]
